FAERS Safety Report 7928121-7 (Version None)
Quarter: 2011Q4

REPORT INFORMATION
  Report Type: 
  Country: None (occurrence: None)
  Receive Date: 20111118
  Receipt Date: 20111109
  Transmission Date: 20120403
  Serious: Yes (Hospitalization)
  Sender: FDA-Public Use
  Company Number: US-ABBOTT-11P-163-0872999-00

PATIENT
  Age: 37 Year
  Sex: Male

DRUGS (3)
  1. IMODIUM [Concomitant]
     Indication: DIARRHOEA
  2. HUMIRA [Suspect]
     Indication: CROHN'S DISEASE
     Dosage: LOADING DOSE, THEN 80MG LOADING DOSE ONLY IN 2009
     Dates: start: 20091101, end: 20091201
  3. UNKNOWN MEDICATION [Concomitant]
     Indication: DIARRHOEA

REACTIONS (1)
  - GASTROINTESTINAL STENOSIS [None]
